FAERS Safety Report 13743502 (Version 3)
Quarter: 2017Q4

REPORT INFORMATION
  Report Type: Spontaneous
  Country: IT (occurrence: IT)
  Receive Date: 20170711
  Receipt Date: 20171128
  Transmission Date: 20180320
  Serious: Yes (Hospitalization, Other)
  Sender: FDA-Public Use
  Company Number: IT-TEVA-785022ACC

PATIENT
  Age: 40 Year
  Sex: Male

DRUGS (5)
  1. DIAZEPAM. [Suspect]
     Active Substance: DIAZEPAM
     Indication: INTENTIONAL PRODUCT MISUSE
     Dosage: 350 MILLIGRAM DAILY;
     Route: 065
  2. FLUMAZENIL. [Suspect]
     Active Substance: FLUMAZENIL
     Indication: DRUG DEPENDENCE
     Dosage: FOR 24 HOURS/DAY
     Route: 058
  3. CLOBAZAM [Suspect]
     Active Substance: CLOBAZAM
     Indication: PRODUCT USED FOR UNKNOWN INDICATION
  4. CLONAZEPAM. [Suspect]
     Active Substance: CLONAZEPAM
     Indication: PRODUCT USED FOR UNKNOWN INDICATION
     Route: 048
  5. SODIUM VALPROATE + VALPROIC ACID [Suspect]
     Active Substance: VALPROATE SODIUM
     Indication: CONVULSION PROPHYLAXIS
     Dosage: 1000MG
     Route: 065

REACTIONS (7)
  - Product use issue [Unknown]
  - Drug dependence [Recovered/Resolved]
  - Intentional overdose [Recovered/Resolved]
  - Seizure [Unknown]
  - Drug withdrawal convulsions [Recovered/Resolved]
  - Off label use [Unknown]
  - Intentional product misuse [Recovered/Resolved]
